FAERS Safety Report 17214408 (Version 2)
Quarter: 2020Q1

REPORT INFORMATION
  Report Type: Spontaneous
  Country: IT (occurrence: IT)
  Receive Date: 20191230
  Receipt Date: 20200107
  Transmission Date: 20200409
  Serious: Yes (Other)
  Sender: FDA-Public Use
  Company Number: IT-ROCHE-2501814

PATIENT
  Age: 53 Year
  Sex: Male

DRUGS (1)
  1. OCRELIZUMAB. [Suspect]
     Active Substance: OCRELIZUMAB
     Indication: PROGRESSIVE MULTIPLE SCLEROSIS
     Route: 041
     Dates: start: 20190326

REACTIONS (2)
  - Epilepsy [Not Recovered/Not Resolved]
  - Tonic clonic movements [Not Recovered/Not Resolved]

NARRATIVE: CASE EVENT DATE: 20191103
